FAERS Safety Report 18901339 (Version 2)
Quarter: 2021Q2

REPORT INFORMATION
  Report Type: Spontaneous
  Country: US (occurrence: US)
  Receive Date: 20210216
  Receipt Date: 20210415
  Transmission Date: 20210717
  Serious: No
  Sender: FDA-Public Use
  Company Number: US-PFIZER INC-2021117168

PATIENT
  Age: 60 Year
  Sex: Female

DRUGS (4)
  1. AZITHROMYCIN ANHYDROUS. [Suspect]
     Active Substance: AZITHROMYCIN ANHYDROUS
     Dosage: 500 MG, 1X/DAY (TAKE FIVE DAYS)
  2. IVERMECTIN. [Suspect]
     Active Substance: IVERMECTIN
     Dosage: 12 MG, DAILY (TAKE 4 PILLS A DAY FOR 2 DAYS)
  3. PREDNISONE. [Suspect]
     Active Substance: PREDNISONE
     Dosage: 60 MG, 1X/DAY
  4. BENZONATATE. [Suspect]
     Active Substance: BENZONATATE
     Dosage: 100 MG, 1X/DAY

REACTIONS (1)
  - Therapeutic product effect incomplete [Unknown]
